FAERS Safety Report 16799844 (Version 1)
Quarter: 2019Q3

REPORT INFORMATION
  Report Type: Spontaneous
  Country: US (occurrence: US)
  Receive Date: 20190723
  Receipt Date: 20190723
  Transmission Date: 20191005
  Serious: No
  Sender: FDA-Public Use
  Company Number: None

PATIENT
  Age: 67 Year
  Sex: Male

DRUGS (1)
  1. ENBREL [Suspect]
     Active Substance: ETANERCEPT
     Dates: start: 20180924

REACTIONS (4)
  - Skin disorder [None]
  - Therapy cessation [None]
  - Memory impairment [None]
  - Condition aggravated [None]

NARRATIVE: CASE EVENT DATE: 20190722
